FAERS Safety Report 5324713-2 (Version None)
Quarter: 2007Q2

REPORT INFORMATION
  Report Type: 
  Country: None (occurrence: None)
  Receive Date: 20070509
  Receipt Date: 20070425
  Transmission Date: 20071010
  Serious: Yes (Other)
  Sender: FDA-Public Use
  Company Number: 2007AL001722

PATIENT
  Age: 68 Year
  Sex: Male

DRUGS (12)
  1. DILTIAZEM HYDROCHLORIDE [Suspect]
     Indication: HYPERTENSION
     Dosage: 180 MG; QD; PO
     Route: 048
     Dates: start: 19970101, end: 20060701
  2. OMEPRAZOLE [Concomitant]
  3. METFORMIN HCL [Concomitant]
  4. SIMVASTATIN [Concomitant]
  5. DOXAZOSIN MESYLATE [Concomitant]
  6. TAMSULOSIN HCL [Concomitant]
  7. ISOSORBIDE [Concomitant]
  8. INDAPAMIDE [Concomitant]
  9. ASPIRIN [Concomitant]
  10. IRBESARTAN [Concomitant]
  11. FUROSEMIDE [Concomitant]
  12. INSULIN [Concomitant]

REACTIONS (1)
  - LYMPHOID TISSUE HYPERPLASIA [None]
